FAERS Safety Report 5485407-6 (Version None)
Quarter: 2007Q4

REPORT INFORMATION
  Report Type: 
  Country: None (occurrence: None)
  Receive Date: 20071010
  Receipt Date: 20071010
  Transmission Date: 20080405
  Serious: Yes (Other)
  Sender: FDA-Public Use
  Company Number: None

PATIENT
  Age: 52 Year
  Sex: Female
  Weight: 73.4827 kg

DRUGS (9)
  1. CHANTIX [Suspect]
     Indication: DRUG ERUPTION
     Dosage: 0.5MG TABLET QD PO
     Route: 048
     Dates: start: 20071002, end: 20071002
  2. CHANTIX [Suspect]
     Indication: DRUG HYPERSENSITIVITY
     Dosage: 0.5MG TABLET QD PO
     Route: 048
     Dates: start: 20071002, end: 20071002
  3. ZETIA [Concomitant]
  4. LORAZEPAM [Concomitant]
  5. NAPROXEN [Concomitant]
  6. LAMICTAL [Concomitant]
  7. RISPERDAL [Concomitant]
  8. CONSTA [Concomitant]
  9. AMITRIPTYLINE HCL [Concomitant]

REACTIONS (1)
  - RASH [None]
